FAERS Safety Report 14255494 (Version 1)
Quarter: 2017Q4

REPORT INFORMATION
  Report Type: Spontaneous
  Country: US (occurrence: None)
  Receive Date: 20171206
  Receipt Date: 20171206
  Transmission Date: 20180321
  Serious: Yes (Other)
  Sender: FDA-Public Use
  Company Number: None

PATIENT
  Age: 62 Year
  Sex: Male
  Weight: 95.25 kg

DRUGS (27)
  1. ELAVIL [Suspect]
     Active Substance: AMITRIPTYLINE HYDROCHLORIDE
     Indication: NEUROPATHY PERIPHERAL
     Route: 048
     Dates: start: 20160519, end: 20171101
  2. FLUTICASONE. [Concomitant]
     Active Substance: FLUTICASONE
  3. INSULIN LISPRO [Concomitant]
     Active Substance: INSULIN LISPRO
  4. LEVEMIR [Concomitant]
     Active Substance: INSULIN DETEMIR
  5. LINAGLIPTIN [Concomitant]
     Active Substance: LINAGLIPTIN
  6. MOVANTIK [Concomitant]
     Active Substance: NALOXEGOL OXALATE
  7. NOVOLOG [Concomitant]
     Active Substance: INSULIN ASPART
  8. ALBUTEROL. [Concomitant]
     Active Substance: ALBUTEROL
  9. AMLODIPINE [Concomitant]
     Active Substance: AMLODIPINE BESYLATE
  10. OXYCODONE [Concomitant]
     Active Substance: OXYCODONE
  11. PREGABALIN. [Concomitant]
     Active Substance: PREGABALIN
  12. TRAVATAN Z [Concomitant]
     Active Substance: TRAVOPROST
  13. VITAMIN B COMPLEX [Concomitant]
     Active Substance: CYANOCOBALAMIN\DEXPANTHENOL\NIACINAMIDE\PYRIDOXINE HYDROCHLORIDE\RIBOFLAVIN 5^-PHOSPHATE SODIUM\THIAMINE HYDROCHLORIDE\VITAMIN B COMPLEX
  14. MONTELUKAST [Concomitant]
     Active Substance: MONTELUKAST SODIUM
  15. DULOXETINE. [Concomitant]
     Active Substance: DULOXETINE
  16. PRAVASTATIN. [Concomitant]
     Active Substance: PRAVASTATIN
  17. WARFARIN [Concomitant]
     Active Substance: WARFARIN
  18. NUT.TX.GLUC.INTOL, LAC-FREE, SOY LIQD [Concomitant]
  19. SELENIUM SULFIDE. [Concomitant]
     Active Substance: SELENIUM SULFIDE
  20. CYCLOBENZAPRINE. [Concomitant]
     Active Substance: CYCLOBENZAPRINE
  21. AMINOCAPROIC ACID. [Concomitant]
     Active Substance: AMINOCAPROIC ACID
  22. OMEPRAZOLE. [Concomitant]
     Active Substance: OMEPRAZOLE
  23. ASPIRIN. [Concomitant]
     Active Substance: ASPIRIN
  24. DICYCLOMINE [Concomitant]
     Active Substance: DICYCLOMINE HYDROCHLORIDE
  25. DOCUSATE SODIUM. [Concomitant]
     Active Substance: DOCUSATE SODIUM
  26. FERROUS SULFATE. [Concomitant]
     Active Substance: FERROUS SULFATE
  27. GUAIFENESIN. [Concomitant]
     Active Substance: GUAIFENESIN

REACTIONS (2)
  - Breast tenderness [None]
  - Gynaecomastia [None]

NARRATIVE: CASE EVENT DATE: 20171007
